FAERS Safety Report 12943056 (Version 4)
Quarter: 2016Q4

REPORT INFORMATION
  Report Type: Report from Study
  Country: BR (occurrence: BR)
  Receive Date: 20161115
  Receipt Date: 20161221
  Transmission Date: 20170207
  Serious: Yes (Other)
  Sender: FDA-Public Use
  Company Number: PHHY2016BR144814

PATIENT
  Age: 37 Year
  Sex: Female
  Weight: 48 kg

DRUGS (2)
  1. HYDREA [Concomitant]
     Active Substance: HYDROXYUREA
     Indication: PRODUCT USED FOR UNKNOWN INDICATION
     Dosage: 500 MG, BID
     Route: 065
  2. EXJADE [Suspect]
     Active Substance: DEFERASIROX
     Indication: SICKLE CELL ANAEMIA
     Dosage: 1375 MG, QD (2 TABLETS OF 500 MG, 1 OF 250 MG AND 1 OF 125 MG)
     Route: 048
     Dates: start: 20160719, end: 201610

REACTIONS (7)
  - Skin ulcer [Recovering/Resolving]
  - Pain in extremity [Recovered/Resolved]
  - Scab [Recovering/Resolving]
  - Pain [Recovering/Resolving]
  - Scar [Unknown]
  - Wound [Unknown]
  - Peripheral swelling [Unknown]

NARRATIVE: CASE EVENT DATE: 201608
